FAERS Safety Report 25077850 (Version 3)
Quarter: 2025Q1

REPORT INFORMATION
  Report Type: Report from Study
  Country: US (occurrence: US)
  Receive Date: 20250314
  Receipt Date: 20250328
  Transmission Date: 20250409
  Serious: Yes (Other)
  Sender: GLAXOSMITHKLINE
  Company Number: US-GSKCCFUS-Case-01870548_AE-104444

PATIENT

DRUGS (3)
  1. BELIMUMAB [Suspect]
     Active Substance: BELIMUMAB
     Indication: Systemic lupus erythematosus
     Dosage: 200 MG/ML, WE
     Route: 058
     Dates: start: 20231121
  2. BELIMUMAB [Suspect]
     Active Substance: BELIMUMAB
     Dosage: 200 MG/ML, WE
     Route: 058
     Dates: start: 202406, end: 20250227
  3. BELIMUMAB [Suspect]
     Active Substance: BELIMUMAB
     Dosage: 200 MG, WE
     Route: 058
     Dates: start: 202408, end: 202412

REACTIONS (5)
  - Systemic lupus erythematosus [Unknown]
  - Pruritus [Unknown]
  - Pain in extremity [Unknown]
  - Product administered at inappropriate site [Unknown]
  - Product dose omission issue [Unknown]

NARRATIVE: CASE EVENT DATE: 20231121
